FAERS Safety Report 15709976 (Version 1)
Quarter: 2018Q4

REPORT INFORMATION
  Report Type: Report from Study
  Country: US (occurrence: US)
  Receive Date: 20181211
  Receipt Date: 20181211
  Transmission Date: 20190205
  Serious: Yes (Other)
  Sender: FDA-Public Use
  Company Number: US-BIOGEN-2018BI00666822

PATIENT
  Sex: Female

DRUGS (1)
  1. TYSABRI [Suspect]
     Active Substance: NATALIZUMAB
     Indication: MULTIPLE SCLEROSIS
     Dosage: INFUSED OVER 1 HOUR
     Route: 042
     Dates: start: 20110614

REACTIONS (16)
  - Eye pain [Unknown]
  - Swollen tongue [Unknown]
  - Malaise [Unknown]
  - Motor dysfunction [Unknown]
  - Neurological symptom [Unknown]
  - Balance disorder [Unknown]
  - Mobility decreased [Unknown]
  - Asthenia [Not Recovered/Not Resolved]
  - Headache [Unknown]
  - Dysarthria [Unknown]
  - Head discomfort [Unknown]
  - Speech disorder [Not Recovered/Not Resolved]
  - Ear pain [Unknown]
  - Peripheral swelling [Unknown]
  - Facial paralysis [Unknown]
  - General symptom [Unknown]
